FAERS Safety Report 19737172 (Version 2)
Quarter: 2021Q4

REPORT INFORMATION
  Report Type: Spontaneous
  Country: None (occurrence: US)
  Receive Date: 20210823
  Receipt Date: 20211122
  Transmission Date: 20220304
  Serious: No
  Sender: FDA-Public Use
  Company Number: US-AKCEA THERAPEUTICS, INC.-2021IS001331

PATIENT
  Age: 71 Year
  Sex: Male

DRUGS (2)
  1. TEGSEDI [Suspect]
     Active Substance: INOTERSEN SODIUM
     Indication: Hereditary neuropathic amyloidosis
     Route: 058
     Dates: start: 20201026
  2. DEVICE [Suspect]
     Active Substance: DEVICE

REACTIONS (11)
  - Platelet count increased [Unknown]
  - Blood creatinine abnormal [Unknown]
  - Urine protein/creatinine ratio increased [Unknown]
  - pH urine increased [Unknown]
  - Protein urine present [Unknown]
  - Crystal urine present [Unknown]
  - Urine abnormality [Unknown]
  - Bacterial test positive [Unknown]
  - Urinary casts [Unknown]
  - Urinary occult blood positive [Unknown]
  - Red blood cells urine positive [Unknown]

NARRATIVE: CASE EVENT DATE: 20210908
